FAERS Safety Report 9325415 (Version 1)
Quarter: 2013Q2

REPORT INFORMATION
  Report Type: Report from Study
  Country: US (occurrence: US)
  Receive Date: 20130604
  Receipt Date: 20130604
  Transmission Date: 20140414
  Serious: Yes (Other)
  Sender: FDA-Public Use
  Company Number: US-ROCHE-1227791

PATIENT
  Sex: Male

DRUGS (1)
  1. BEVACIZUMAB [Suspect]
     Indication: PRODUCT USED FOR UNKNOWN INDICATION
     Route: 065

REACTIONS (19)
  - Disease progression [Unknown]
  - Cognitive disorder [Unknown]
  - Memory impairment [Unknown]
  - Mini mental status examination abnormal [Unknown]
  - Mini mental status examination abnormal [Unknown]
  - Poverty of speech [Unknown]
  - Visual field defect [Unknown]
  - Cerebellar ataxia [Unknown]
  - Cerebellar syndrome [Unknown]
  - Coordination abnormal [Unknown]
  - Confusional state [Unknown]
  - Amnesia [Unknown]
  - Reading disorder [Unknown]
  - Dysgraphia [Unknown]
  - Nodule [Unknown]
  - Asthenia [Unknown]
  - Neoplasm [Unknown]
  - Fatigue [Unknown]
  - Dysphonia [Unknown]
